FAERS Safety Report 6027543-1 (Version None)
Quarter: 2009Q1

REPORT INFORMATION
  Report Type: 
  Country: None (occurrence: None)
  Receive Date: 20090105
  Receipt Date: 20081027
  Transmission Date: 20090719
  Serious: No
  Sender: FDA-Public Use
  Company Number: US-BAYER-200814203BCC

PATIENT
  Age: 54 Year
  Sex: Female
  Weight: 91 kg

DRUGS (8)
  1. ALEVE [Suspect]
     Indication: ARTHRALGIA
     Dosage: UNIT DOSE: 220 MG
     Dates: start: 20081024, end: 20081026
  2. ALEVE [Suspect]
     Dates: start: 20060101
  3. ATENOLOL [Concomitant]
  4. DIAZIDE [Concomitant]
  5. LIPITOR [Concomitant]
  6. AMITRIPTYLINE HCL [Concomitant]
  7. ADVIL LIQUI-GELS [Concomitant]
  8. EXCEDRIN [Concomitant]

REACTIONS (2)
  - ABDOMINAL PAIN UPPER [None]
  - DIARRHOEA [None]
